FAERS Safety Report 6719103-1 (Version None)
Quarter: 2010Q2

REPORT INFORMATION
  Report Type: 
  Country: None (occurrence: None)
  Receive Date: 20100507
  Receipt Date: 20100427
  Transmission Date: 20101027
  Serious: Yes (Hospitalization, Disabling)
  Sender: FDA-Public Use
  Company Number: NSR_00097_2010

PATIENT
  Age: 71 Year
  Sex: Male

DRUGS (3)
  1. METOCLOPRAMIDE [Suspect]
     Indication: CONSTIPATION
     Dosage: 10 MG, TID
     Dates: start: 20070502, end: 20070522
  2. METOCLOPRAMIDE [Suspect]
     Indication: OFF LABEL USE
     Dosage: 10 MG, TID
     Dates: start: 20070502, end: 20070522
  3. TRIHEXYPHENIDYL HCL [Suspect]
     Indication: TREMOR
     Dosage: DF
     Dates: start: 20030101, end: 20070101

REACTIONS (7)
  - AGGRESSION [None]
  - AGITATION [None]
  - CEREBRAL ATROPHY [None]
  - HALLUCINATION, VISUAL [None]
  - NUCLEAR MAGNETIC RESONANCE IMAGING BRAIN ABNORMAL [None]
  - PARKINSONISM [None]
  - PERSONALITY CHANGE [None]
